FAERS Safety Report 10209783 (Version 1)
Quarter: 2014Q2

REPORT INFORMATION
  Report Type: Spontaneous
  Country: RU (occurrence: RU)
  Receive Date: 20140602
  Receipt Date: 20140602
  Transmission Date: 20141212
  Serious: Yes (Other)
  Sender: FDA-Public Use
  Company Number: RU-ASTRAZENECA-2014SE36302

PATIENT
  Sex: Female

DRUGS (1)
  1. BETALOC ZOK [Suspect]
     Route: 048
     Dates: start: 20140524

REACTIONS (2)
  - Atrial fibrillation [Recovered/Resolved]
  - Heart rate decreased [Unknown]
